FAERS Safety Report 17493712 (Version 2)
Quarter: 2020Q1

REPORT INFORMATION
  Report Type: Spontaneous
  Country: US (occurrence: US)
  Receive Date: 20200304
  Receipt Date: 20200305
  Transmission Date: 20200409
  Serious: Yes (Hospitalization, Other)
  Sender: FDA-Public Use
  Company Number: US-ELI_LILLY_AND_COMPANY-US202002010869

PATIENT
  Sex: Male

DRUGS (2)
  1. HUMALOG [Suspect]
     Active Substance: INSULIN LISPRO
     Indication: TYPE 1 DIABETES MELLITUS
     Dosage: 30-40 UNITS, DAILY
     Route: 058
     Dates: start: 2002
  2. LANTUS [Concomitant]
     Active Substance: INSULIN GLARGINE
     Indication: TYPE 1 DIABETES MELLITUS
     Dosage: 22 U, UNKNOWN
     Route: 065
     Dates: start: 2002

REACTIONS (3)
  - Sepsis [Recovering/Resolving]
  - Diabetic ketoacidosis [Recovering/Resolving]
  - Skin abrasion [Unknown]
